FAERS Safety Report 11283474 (Version 1)
Quarter: 2015Q3

REPORT INFORMATION
  Report Type: Spontaneous
  Country: US (occurrence: US)
  Receive Date: 20150720
  Receipt Date: 20150720
  Transmission Date: 20151125
  Serious: No
  Sender: FDA-Public Use
  Company Number: CHPA2015US008446

PATIENT
  Age: 80 Year
  Sex: Female

DRUGS (2)
  1. VOLTAREN [Suspect]
     Active Substance: DICLOFENAC SODIUM
     Indication: OSTEOARTHRITIS
     Dosage: 1 OR 2 INCHES OR UP TO THE FIRST DIGIT, ONCE A DAY AT NIGHT
     Route: 061
  2. VOLTAREN [Suspect]
     Active Substance: DICLOFENAC SODIUM
     Indication: PRODUCT USED FOR UNKNOWN INDICATION
     Dosage: UNK
     Route: 065

REACTIONS (12)
  - Lactose intolerance [Not Recovered/Not Resolved]
  - Abdominal pain upper [Unknown]
  - Incorrect dose administered [Unknown]
  - Arthropathy [Unknown]
  - Asthma [Not Recovered/Not Resolved]
  - Wrong technique in product usage process [Unknown]
  - Bursitis [Recovered/Resolved]
  - Pain [Unknown]
  - Drug administered at inappropriate site [Unknown]
  - Diarrhoea [Recovered/Resolved]
  - Therapeutic response unexpected [Unknown]
  - Inappropriate schedule of drug administration [Unknown]
